FAERS Safety Report 4666760-X (Version None)
Quarter: 2005Q2

REPORT INFORMATION
  Report Type: 
  Country: None (occurrence: None)
  Receive Date: 20050518
  Receipt Date: 20040407
  Transmission Date: 20051028
  Serious: Yes (Other)
  Sender: FDA-Public Use
  Company Number: 2004194672US

PATIENT
  Age: 15 Year
  Sex: Female
  Weight: 59 kg

DRUGS (3)
  1. DEPO-PROVERA [Suspect]
     Indication: CONTRACEPTION
     Dosage: 150 MG, LAST INJECTION, INTRAMUSCULAR
     Route: 030
     Dates: start: 20030723, end: 20030723
  2. DEPO-PROVERA [Suspect]
     Indication: CONTRACEPTION
     Dosage: 150 MG, 2ND INJECTION, INTRAMUSCULAR;  150 MG, 1ST INJECTION, INTRAMUSCULAR
     Route: 030
     Dates: start: 20021202, end: 20021202
  3. DEPO-PROVERA [Suspect]
     Indication: CONTRACEPTION
     Dosage: 150 MG, 2ND INJECTION, INTRAMUSCULAR;  150 MG, 1ST INJECTION, INTRAMUSCULAR
     Route: 030
     Dates: start: 20030315, end: 20030315

REACTIONS (1)
  - UNINTENDED PREGNANCY [None]
